FAERS Safety Report 10229748 (Version 1)
Quarter: 2014Q2

REPORT INFORMATION
  Report Type: Spontaneous
  Country: US (occurrence: US)
  Receive Date: 20140611
  Receipt Date: 20140611
  Transmission Date: 20141212
  Serious: Yes (Other)
  Sender: FDA-Public Use
  Company Number: PHEH2014US011421

PATIENT
  Age: 75 Year
  Sex: Female

DRUGS (3)
  1. ZOMETA [Suspect]
     Indication: METASTASES TO BONE
     Dates: start: 20090507, end: 20120413
  2. FOSAMAX [Suspect]
     Indication: OSTEOPENIA
     Dosage: UNK
     Dates: start: 19980308, end: 20080206
  3. FOSAMAX [Suspect]
     Indication: OSTEOPOROSIS

REACTIONS (9)
  - Stress fracture [Unknown]
  - Atypical femur fracture [Unknown]
  - Bone disorder [Unknown]
  - Injury [Unknown]
  - Pain [Unknown]
  - Emotional distress [Unknown]
  - Anxiety [Unknown]
  - Anhedonia [Unknown]
  - Low turnover osteopathy [Unknown]
